FAERS Safety Report 6104030-3 (Version None)
Quarter: 2009Q1

REPORT INFORMATION
  Report Type: 
  Country: None (occurrence: None)
  Receive Date: 20090305
  Receipt Date: 20090224
  Transmission Date: 20090719
  Serious: Yes (Other)
  Sender: FDA-Public Use
  Company Number: US-AMGEN-US336102

PATIENT
  Sex: Female
  Weight: 54.9 kg

DRUGS (1)
  1. NEUPOGEN [Suspect]
     Indication: AGRANULOCYTOSIS

REACTIONS (1)
  - ABORTION SPONTANEOUS [None]
